FAERS Safety Report 8045228-7 (Version None)
Quarter: 2012Q1

REPORT INFORMATION
  Report Type: 
  Country: None (occurrence: None)
  Receive Date: 20120111
  Receipt Date: 20120111
  Transmission Date: 20120608
  Serious: No
  Sender: FDA-Public Use
  Company Number: None

PATIENT
  Sex: Female
  Weight: 88.4514 kg

DRUGS (6)
  1. LEVAQUIN [Suspect]
     Indication: ACUTE SINUSITIS
     Dosage: 500 MG 1 QD P.O.
     Route: 048
     Dates: start: 20110505
  2. LEVAQUIN [Suspect]
     Indication: ACUTE SINUSITIS
     Dosage: 500 MG 1 QD P.O.
     Route: 048
     Dates: start: 20110311
  3. LEVAQUIN [Suspect]
     Indication: ACUTE SINUSITIS
     Dosage: 500 MG 1 QD P.O.
     Route: 048
     Dates: start: 20111119
  4. LEVAQUIN [Suspect]
     Indication: ACUTE SINUSITIS
     Dosage: 500 MG 1 QD P.O.
     Route: 048
     Dates: start: 20110721
  5. LEVAQUIN [Suspect]
     Indication: ACUTE SINUSITIS
     Dosage: 500 MG 1 QD P.O.
     Route: 048
     Dates: start: 20100310
  6. LEVAQUIN [Suspect]
     Indication: ACUTE SINUSITIS
     Dosage: 500 MG 1 QD P.O.
     Route: 048
     Dates: start: 20100510

REACTIONS (9)
  - ARTHRALGIA [None]
  - DYSSTASIA [None]
  - GROIN PAIN [None]
  - MYALGIA [None]
  - INSOMNIA [None]
  - WEIGHT BEARING DIFFICULTY [None]
  - BONE PAIN [None]
  - TENDON PAIN [None]
  - GAIT DISTURBANCE [None]
